FAERS Safety Report 5885779-4 (Version None)
Quarter: 2008Q3

REPORT INFORMATION
  Report Type: 
  Country: None (occurrence: None)
  Receive Date: 20080917
  Receipt Date: 20080908
  Transmission Date: 20090109
  Serious: Yes (Hospitalization)
  Sender: FDA-Public Use
  Company Number: US-ELI_LILLY_AND_COMPANY-US200809001791

PATIENT
  Sex: Male

DRUGS (3)
  1. HUMULIN R [Suspect]
     Dosage: 14 U, EACH MORNING
  2. HUMULIN R [Suspect]
     Dosage: 10 U, EACH EVENING
  3. HUMULIN R [Suspect]

REACTIONS (2)
  - CARDIAC DISORDER [None]
  - INCORRECT DOSE ADMINISTERED [None]
